FAERS Safety Report 11212800 (Version 2)
Quarter: 2015Q2

REPORT INFORMATION
  Report Type: Spontaneous
  Country: US (occurrence: US)
  Receive Date: 20150623
  Receipt Date: 20150629
  Transmission Date: 20150821
  Serious: No
  Sender: FDA-Public Use
  Company Number: DE-ASTRAZENECA-2015SE61062

PATIENT
  Sex: Male

DRUGS (1)
  1. VIMOVO [Suspect]
     Active Substance: ESOMEPRAZOLE MAGNESIUM\NAPROXEN
     Indication: MUSCULOSKELETAL PAIN
     Dosage: 500 MG/20 MG  TWICE DAILY
     Route: 048

REACTIONS (2)
  - Off label use [Unknown]
  - Erection increased [Unknown]
